FAERS Safety Report 4383107-7 (Version None)
Quarter: 2004Q2

REPORT INFORMATION
  Report Type: 
  Country: None (occurrence: None)
  Receive Date: 20040618
  Receipt Date: 20040326
  Transmission Date: 20050107
  Serious: Yes (Life-Threatening)
  Sender: FDA-Public Use
  Company Number: USA-2004-0015621

PATIENT
  Age: 63 Year
  Sex: Male

DRUGS (7)
  1. MS CONTIN [Suspect]
     Indication: BONE PAIN
     Dosage: 40 MG
     Dates: start: 20040112
  2. CELEBREX [Suspect]
     Indication: ARTHRITIS
     Dosage: 400 MG , ORAL
     Route: 048
     Dates: start: 20040102, end: 20040114
  3. ACETAMINOPHEN [Concomitant]
  4. LEFLUNOMIDE [Concomitant]
  5. SULFASALAZINE [Concomitant]
  6. ATACAND [Concomitant]
  7. HYDROCHLOROTHIAZIDE [Concomitant]

REACTIONS (5)
  - DEHYDRATION [None]
  - OLIGURIA [None]
  - RENAL FAILURE ACUTE [None]
  - RENAL FAILURE CHRONIC [None]
  - VOMITING [None]
